FAERS Safety Report 5049115-8 (Version None)
Quarter: 2006Q3

REPORT INFORMATION
  Report Type: 
  Country: None (occurrence: None)
  Receive Date: 20060706
  Receipt Date: 20060626
  Transmission Date: 20061208
  Serious: Yes (Other)
  Sender: FDA-Public Use
  Company Number: 2006081731

PATIENT
  Age: 45 Year
  Sex: Male

DRUGS (8)
  1. ZOLOFT [Suspect]
     Indication: DEPRESSION
     Dosage: 150 MG (1 IN 1 D), ORAL
     Route: 048
     Dates: start: 20051025, end: 20060116
  2. VENLAFAXINE HCL [Suspect]
     Dosage: 75 MG (1 IN 1 D), ORAL
     Route: 048
     Dates: start: 20060117, end: 20060117
  3. MIRTAZAPINE [Suspect]
     Dosage: 45 MG (1 IN 1 D), ORAL
     Route: 048
     Dates: start: 20051017
  4. PROMETHAZINE [Suspect]
     Dosage: 100 MG (1 IN 1 D), ORAL
     Route: 048
     Dates: start: 20060116
  5. SOLIAN (AMISULPRIDE) [Concomitant]
  6. LORAZEPAM [Concomitant]
  7. STAURODORM (FLURAZEPAM) [Concomitant]
  8. ASPIRIN [Concomitant]

REACTIONS (6)
  - DIZZINESS [None]
  - DRUG INTERACTION [None]
  - HEADACHE [None]
  - MALAISE [None]
  - SEROTONIN SYNDROME [None]
  - SINUS TACHYCARDIA [None]
